FAERS Safety Report 6884140-3 (Version None)
Quarter: 2010Q3

REPORT INFORMATION
  Report Type: 
  Country: None (occurrence: None)
  Receive Date: 20100729
  Receipt Date: 20100722
  Transmission Date: 20110219
  Serious: Yes (Hospitalization, Other)
  Sender: FDA-Public Use
  Company Number: BR-ABBOTT-10P-020-0649059-00

PATIENT
  Sex: Female
  Weight: 66 kg

DRUGS (7)
  1. HUMIRA [Suspect]
     Indication: RHEUMATOID ARTHRITIS
     Route: 058
  2. DEFLAZACORT [Concomitant]
     Indication: PAIN
  3. FAMOTIDINE [Concomitant]
     Indication: GASTRIC DISORDER
     Route: 048
  4. MELOXICAM [Concomitant]
     Indication: PAIN
     Route: 048
  5. OMEPRAZOLE [Concomitant]
     Indication: GASTRIC DISORDER
     Route: 048
  6. LEVOTHYROXINE SODIUM [Concomitant]
     Indication: HYPOTHYROIDISM
     Route: 048
  7. CALCIUM [Concomitant]
     Indication: BONE DISORDER
     Route: 048

REACTIONS (2)
  - KNEE ARTHROPLASTY [None]
  - PATHOLOGICAL FRACTURE [None]
